FAERS Safety Report 4767717-0 (Version None)
Quarter: 2005Q3

REPORT INFORMATION
  Report Type: 
  Country: None (occurrence: None)
  Receive Date: 20050912
  Receipt Date: 20050818
  Transmission Date: 20060218
  Serious: No
  Sender: FDA-Public Use
  Company Number: EWC050945658

PATIENT
  Age: 60 Year
  Sex: Female

DRUGS (2)
  1. ZYPREXA [Suspect]
     Indication: BIPOLAR DISORDER
     Dosage: 10 MG/1 DAY
     Dates: start: 20020101, end: 20050816
  2. LEGALON (SILYBUM MARIANUM ) [Concomitant]

REACTIONS (1)
  - THROMBOCYTOPENIC PURPURA [None]
